FAERS Safety Report 5607522-6 (Version None)
Quarter: 2008Q1

REPORT INFORMATION
  Report Type: 
  Country: None (occurrence: None)
  Receive Date: 20080130
  Receipt Date: 20080125
  Transmission Date: 20080703
  Serious: Yes (Other)
  Sender: FDA-Public Use
  Company Number: PHHO2007US20972

PATIENT
  Age: 6 Year
  Sex: Female

DRUGS (3)
  1. PROTOPIC [Concomitant]
     Indication: DERMATITIS ATOPIC
  2. CORTICOSTEROIDS [Concomitant]
     Indication: DERMATITIS ATOPIC
     Route: 061
  3. ELIDEL [Suspect]
     Indication: DERMATITIS ATOPIC
     Route: 061

REACTIONS (1)
  - NEOPLASM MALIGNANT [None]
